FAERS Safety Report 8488464-8 (Version None)
Quarter: 2012Q3

REPORT INFORMATION
  Report Type: 
  Country: None (occurrence: None)
  Receive Date: 20120705
  Receipt Date: 20120625
  Transmission Date: 20120928
  Serious: Yes (Other)
  Sender: FDA-Public Use
  Company Number: US-ELI_LILLY_AND_COMPANY-US201206008166

PATIENT
  Sex: Male
  Weight: 66.4 kg

DRUGS (2)
  1. INSULIN BASAL ANALOG III (LY2605541) SUB [Suspect]
     Indication: TYPE 1 DIABETES MELLITUS
     Dosage: 26 U, EACH EVENING
     Dates: start: 20120221
  2. HUMALOG [Suspect]
     Indication: TYPE 1 DIABETES MELLITUS
     Dosage: 5 U, UNK
     Dates: start: 20120221

REACTIONS (2)
  - HYPOGLYCAEMIA [None]
  - LOSS OF CONSCIOUSNESS [None]
